FAERS Safety Report 19376912 (Version 1)
Quarter: 2021Q2

REPORT INFORMATION
  Report Type: Spontaneous
  Country: KR (occurrence: KR)
  Receive Date: 20210605
  Receipt Date: 20210605
  Transmission Date: 20210717
  Serious: No
  Sender: FDA-Public Use
  Company Number: KR-LUPIN PHARMACEUTICALS INC.-2021-08366

PATIENT
  Age: 14 Year
  Sex: Female

DRUGS (2)
  1. MYCOPHENOLATE MOFETIL. [Concomitant]
     Active Substance: MYCOPHENOLATE MOFETIL
     Indication: SYSTEMIC LUPUS ERYTHEMATOSUS
     Dosage: UNK
     Route: 065
  2. HYDROXYCHLOROQUINE [Suspect]
     Active Substance: HYDROXYCHLOROQUINE
     Indication: SYSTEMIC LUPUS ERYTHEMATOSUS
     Dosage: UNK (INTRAVENOUS CANNULATION)
     Route: 042

REACTIONS (5)
  - Ecchymosis [Unknown]
  - Device placement issue [Unknown]
  - Injury [Unknown]
  - Skin hyperpigmentation [Unknown]
  - Administration site extravasation [Unknown]
